FAERS Safety Report 4741505-3 (Version None)
Quarter: 2005Q3

REPORT INFORMATION
  Report Type: 
  Country: None (occurrence: None)
  Receive Date: 20050808
  Receipt Date: 20050728
  Transmission Date: 20060218
  Serious: Yes (Hospitalization)
  Sender: FDA-Public Use
  Company Number: HQWYE220314JUL05

PATIENT
  Age: 42 Year
  Sex: Male

DRUGS (5)
  1. RAPAMUNE [Suspect]
     Indication: PROPHYLAXIS AGAINST TRANSPLANT REJECTION
     Dosage: SEE IMAGE
     Route: 048
     Dates: start: 20030612
  2. PROGRAF [Suspect]
     Indication: PROPHYLAXIS AGAINST TRANSPLANT REJECTION
     Dosage: SEE IMAGE
     Route: 048
     Dates: start: 20030612
  3. ASPIRIN [Concomitant]
  4. ENALAPRIL MALEATE [Concomitant]
  5. FERRUM (FERROUS FUMARATE) [Concomitant]

REACTIONS (2)
  - DIABETIC FOOT [None]
  - OSTEOMYELITIS [None]
